FAERS Safety Report 8892853 (Version 1)
Quarter: 2012Q4

REPORT INFORMATION
  Report Type: 
  Country: US (occurrence: US)
  Receive Date: 20121107
  Receipt Date: 20121107
  Transmission Date: 20130627
  Serious: No
  Sender: FDA-Public Use
  Company Number: US-AMGEN-USASP2011059452

PATIENT
  Sex: Male
  Weight: 217 kg

DRUGS (11)
  1. ENBREL [Suspect]
     Indication: PRODUCT USED FOR UNKNOWN INDICATION
     Dosage: 50 mg, qwk
     Route: 058
  2. XALATAN [Concomitant]
     Dosage: 0.005 %, UNK
  3. ZESTRIL [Concomitant]
     Dosage: 2.5 mg, UNK
     Route: 048
  4. VITAMIN B COMPLEX [Concomitant]
     Dosage: UNK
     Route: 048
  5. VITAMIN C                          /00008001/ [Concomitant]
     Dosage: 500 mg, UNK
     Route: 048
  6. CINNAMON                           /01647501/ [Concomitant]
     Dosage: 500 mg, UNK
     Route: 048
  7. FISH OIL [Concomitant]
     Dosage: UNK
     Route: 048
  8. VITAMIN D /00107901/ [Concomitant]
     Dosage: 1000 unit, UNK
     Route: 048
  9. MULTIVITAMIN                       /00097801/ [Concomitant]
     Dosage: UNK
     Route: 048
  10. FLAXSEED OIL [Concomitant]
     Dosage: UNK
  11. AZOPT [Concomitant]
     Dosage: 1 UNK, UNK
     Route: 047

REACTIONS (3)
  - Dizziness [Unknown]
  - Headache [Unknown]
  - Influenza like illness [Unknown]
